FAERS Safety Report 19274954 (Version 5)
Quarter: 2021Q3

REPORT INFORMATION
  Report Type: Report from Study
  Country: CO (occurrence: CO)
  Receive Date: 20210519
  Receipt Date: 20210927
  Transmission Date: 20211014
  Serious: Yes (Other)
  Sender: FDA-Public Use
  Company Number: CO-EMD SERONO-9232733

PATIENT
  Age: 44 Year
  Sex: Female

DRUGS (2)
  1. MAVENCLAD [Suspect]
     Active Substance: CLADRIBINE
     Indication: MULTIPLE SCLEROSIS
     Dosage: YEAR ONE CYCLE ONE THERAPY
     Route: 048
     Dates: start: 20210412, end: 20210416
  2. ACETAMINOPHEN. [Concomitant]
     Active Substance: ACETAMINOPHEN
     Indication: PRODUCT USED FOR UNKNOWN INDICATION

REACTIONS (16)
  - Somnolence [Unknown]
  - Dizziness [Unknown]
  - Headache [Not Recovered/Not Resolved]
  - Depression [Unknown]
  - Abdominal discomfort [Unknown]
  - Decreased appetite [Recovered/Resolved]
  - Abdominal pain upper [Not Recovered/Not Resolved]
  - Affect lability [Unknown]
  - Nausea [Recovered/Resolved]
  - Parosmia [Not Recovered/Not Resolved]
  - Fatigue [Not Recovered/Not Resolved]
  - Lip pruritus [Unknown]
  - Vomiting [Recovered/Resolved]
  - Lung adenocarcinoma [Not Recovered/Not Resolved]
  - Oral herpes [Unknown]
  - Throat irritation [Unknown]

NARRATIVE: CASE EVENT DATE: 202104
